FAERS Safety Report 10032387 (Version 1)
Quarter: 2014Q1

REPORT INFORMATION
  Report Type: Spontaneous
  Country: FR (occurrence: FR)
  Receive Date: 20140324
  Receipt Date: 20140324
  Transmission Date: 20141002
  Serious: Yes (Hospitalization)
  Sender: FDA-Public Use
  Company Number: FR-SA-2014SA031584

PATIENT
  Age: 75 Year
  Sex: Male

DRUGS (10)
  1. LASILIX [Suspect]
     Indication: PRODUCT USED FOR UNKNOWN INDICATION
     Dosage: LONG STANDING TREATMENT
     Route: 048
     Dates: start: 201312, end: 201312
  2. LASILIX [Suspect]
     Indication: PRODUCT USED FOR UNKNOWN INDICATION
     Route: 048
     Dates: start: 201312, end: 2014
  3. LASILIX [Suspect]
     Indication: PRODUCT USED FOR UNKNOWN INDICATION
     Route: 048
     Dates: start: 2014, end: 201402
  4. ALDACTONE [Suspect]
     Indication: PRODUCT USED FOR UNKNOWN INDICATION
     Route: 048
     Dates: end: 20140204
  5. JAKAVI [Concomitant]
     Indication: ANAEMIA
     Route: 048
     Dates: start: 201209, end: 20140212
  6. TRANXENE [Concomitant]
     Route: 048
  7. ZYLORIC [Concomitant]
     Route: 048
  8. KARDEGIC [Concomitant]
     Route: 048
  9. CORDARONE [Concomitant]
     Route: 048
  10. CARDENSIEL [Concomitant]
     Route: 048

REACTIONS (1)
  - Renal failure acute [Unknown]
